FAERS Safety Report 9462359 (Version 1)
Quarter: 2013Q3

REPORT INFORMATION
  Report Type: Report from Study
  Country: US (occurrence: US)
  Receive Date: 20130816
  Receipt Date: 20130816
  Transmission Date: 20140515
  Serious: Yes (Hospitalization)
  Sender: FDA-Public Use
  Company Number: US-ABBOTT-13P-163-1131410-00

PATIENT
  Age: 42 Year
  Sex: Female
  Weight: 49.94 kg

DRUGS (4)
  1. CREON [Suspect]
     Indication: PANCREATIC INSUFFICIENCY
     Dosage: WITH MEALS
     Dates: start: 201302
  2. METOPROLOL [Concomitant]
     Indication: HEART RATE ABNORMAL
  3. ELAVIL [Concomitant]
     Indication: ANTIDEPRESSANT THERAPY
  4. PAIN MEDICATION [Concomitant]
     Indication: ABDOMINAL PAIN

REACTIONS (5)
  - Cold sweat [Recovered/Resolved]
  - Ulcer [Recovering/Resolving]
  - Haematemesis [Recovered/Resolved]
  - Abdominal pain [Recovered/Resolved]
  - Asthenia [Recovered/Resolved]
